FAERS Safety Report 9135153 (Version 1)
Quarter: 2013Q1

REPORT INFORMATION
  Report Type: Spontaneous
  Country: CA (occurrence: CA)
  Receive Date: 20130304
  Receipt Date: 20130304
  Transmission Date: 20140127
  Serious: Yes (Death)
  Sender: FDA-Public Use
  Company Number: PHHY2012CA046305

PATIENT
  Age: 74 Year
  Sex: Male

DRUGS (4)
  1. EXJADE [Suspect]
     Indication: MYELODYSPLASTIC SYNDROME
     Dosage: 1000 MG, UNK
     Route: 048
  2. EXJADE [Suspect]
     Dosage: 2000 MG, DAILY
     Route: 048
  3. EXJADE [Suspect]
     Dosage: 2500 MG, UNK
     Route: 048
  4. EXJADE [Suspect]
     Dosage: 2000 MG
     Route: 048
     Dates: start: 201110

REACTIONS (4)
  - Death [Fatal]
  - Asthenia [Unknown]
  - Blood iron increased [Not Recovered/Not Resolved]
  - Fatigue [Unknown]
